FAERS Safety Report 21189080 (Version 6)
Quarter: 2022Q4

REPORT INFORMATION
  Report Type: Report from Study
  Country: GB (occurrence: GB)
  Receive Date: 20220809
  Receipt Date: 20221124
  Transmission Date: 20230113
  Serious: Yes (Other)
  Sender: FDA-Public Use
  Company Number: GB-BRISTOL-MYERS SQUIBB COMPANY-2022-085350

PATIENT
  Age: 75 Year
  Sex: Female

DRUGS (3)
  1. ORENCIA [Suspect]
     Active Substance: ABATACEPT
     Indication: Rheumatoid arthritis
     Route: 058
     Dates: start: 20171127
  2. ORENCIA [Suspect]
     Active Substance: ABATACEPT
     Route: 058
  3. ORENCIA [Suspect]
     Active Substance: ABATACEPT
     Route: 058
     Dates: start: 2015

REACTIONS (6)
  - Deep vein thrombosis [Unknown]
  - Infection [Unknown]
  - Rheumatoid arthritis [Unknown]
  - Limb mass [Unknown]
  - Localised infection [Unknown]
  - Gastric infection [Unknown]

NARRATIVE: CASE EVENT DATE: 20220801
